FAERS Safety Report 14526035 (Version 1)
Quarter: 2018Q1

REPORT INFORMATION
  Report Type: Spontaneous
  Country: JP (occurrence: JP)
  Receive Date: 20180213
  Receipt Date: 20180213
  Transmission Date: 20180509
  Serious: Yes (Hospitalization, Other)
  Sender: FDA-Public Use
  Company Number: JP-BRACCO-2018JP00692

PATIENT
  Age: 70 Year
  Sex: Male

DRUGS (1)
  1. IOPAMIRON [Suspect]
     Active Substance: IOPAMIDOL
     Indication: COMPUTERISED TOMOGRAM ABDOMEN
     Dosage: 89 ML, SINGLE
     Route: 042
     Dates: start: 20170915, end: 20170915

REACTIONS (6)
  - Peripheral coldness [Unknown]
  - Shunt malfunction [Unknown]
  - Nausea [Recovered/Resolved]
  - Yawning [Unknown]
  - Oxygen saturation decreased [Recovered/Resolved]
  - Blood pressure decreased [Recovered/Resolved]

NARRATIVE: CASE EVENT DATE: 20170915
